FAERS Safety Report 7086340-9 (Version None)
Quarter: 2010Q4

REPORT INFORMATION
  Report Type: 
  Country: None (occurrence: None)
  Receive Date: 20101027
  Receipt Date: 20101013
  Transmission Date: 20110411
  Serious: Yes (Hospitalization)
  Sender: FDA-Public Use
  Company Number: 2010US005250

PATIENT
  Age: 68 Year
  Sex: Male
  Weight: 68.5 kg

DRUGS (10)
  1. ALOXI [Suspect]
     Dosage: 0.25 MG, SINGLE, INTRAVENOUS
     Route: 042
     Dates: start: 20080515, end: 20080515
  2. AXITINIB (AXITINIB) [Suspect]
     Indication: COLORECTAL CANCER
     Dosage: 5 MG, BID, ORAL
     Route: 048
     Dates: start: 20080515
  3. AVASTIN [Suspect]
     Indication: COLORECTAL CANCER
     Dosage: 2 MG/KG, Q2WK, INTRAVENOUS
     Route: 042
     Dates: start: 20080515
  4. OXALIPLATIN [Suspect]
     Indication: COLORECTAL CANCER
     Dosage: 150 MG, INTRAVENOUS
     Route: 042
     Dates: start: 20080515, end: 20080515
  5. LEUCOVORIN (FOLINIC ACID) [Suspect]
     Indication: COLORECTAL CANCER
     Dosage: 720 MG, INTRAVENOUS
     Route: 042
     Dates: start: 20080515, end: 20080515
  6. FLUOROURACIL [Suspect]
     Indication: COLORECTAL CANCER
     Dosage: 720 MG, IV BOLUS, 4300 MG, INFUSION
     Route: 040
     Dates: start: 20080515, end: 20080515
  7. FLUOROURACIL [Suspect]
     Indication: COLORECTAL CANCER
     Dosage: 720 MG, IV BOLUS, 4300 MG, INFUSION
     Route: 040
     Dates: start: 20080515, end: 20080515
  8. NORCO [Suspect]
     Indication: ABDOMINAL PAIN
     Dosage: 7.5/350 MG, ORAL
     Route: 048
     Dates: start: 20080505
  9. DEXAMETHASONE [Concomitant]
  10. LASIX [Suspect]
     Indication: OEDEMA PERIPHERAL
     Dosage: ORAL
     Route: 048
     Dates: start: 20080501, end: 20080614

REACTIONS (5)
  - CONSTIPATION [None]
  - DEHYDRATION [None]
  - MALNUTRITION [None]
  - OEDEMA PERIPHERAL [None]
  - SCROTAL OEDEMA [None]
